FAERS Safety Report 6674614-2 (Version None)
Quarter: 2010Q2

REPORT INFORMATION
  Report Type: 
  Country: None (occurrence: None)
  Receive Date: 20100409
  Receipt Date: 20100330
  Transmission Date: 20101027
  Serious: Yes (Other)
  Sender: FDA-Public Use
  Company Number: BR-ROCHE-694499

PATIENT

DRUGS (1)
  1. TAMIFLU [Suspect]
     Indication: DRUG USE FOR UNKNOWN INDICATION
     Route: 065

REACTIONS (6)
  - ARRHYTHMIA [None]
  - CONFUSIONAL STATE [None]
  - CONVULSION [None]
  - DIABETES MELLITUS [None]
  - ENTEROCOLITIS HAEMORRHAGIC [None]
  - TOXIC EPIDERMAL NECROLYSIS [None]
